FAERS Safety Report 9433517 (Version 3)
Quarter: 2014Q3

REPORT INFORMATION
  Report Type: Spontaneous
  Country: US (occurrence: US)
  Receive Date: 20130731
  Receipt Date: 20140717
  Transmission Date: 20150326
  Serious: Yes (Hospitalization)
  Sender: FDA-Public Use
  Company Number: US-009507513-1307USA017047

PATIENT
  Sex: Female
  Weight: 76.19 kg

DRUGS (6)
  1. NUVARING [Suspect]
     Active Substance: ETHINYL ESTRADIOL\ETONOGESTREL
     Indication: MENSTRUATION IRREGULAR
     Dosage: UNK
     Route: 067
     Dates: start: 2005, end: 20060520
  2. TOPAMAX [Concomitant]
     Active Substance: TOPIRAMATE
     Indication: PROPHYLAXIS
     Dosage: UNK, TID
     Route: 048
     Dates: start: 2005, end: 2007
  3. HEMP [Concomitant]
     Active Substance: HEMP
     Indication: HEADACHE
     Dosage: UNK
     Dates: start: 2002
  4. MS CONTIN [Concomitant]
     Active Substance: MORPHINE SULFATE
     Indication: HEADACHE
     Dosage: 10 MG, BID
     Route: 048
     Dates: start: 2005, end: 2007
  5. TOPAMAX [Concomitant]
     Active Substance: TOPIRAMATE
     Indication: INTRACRANIAL PRESSURE INCREASED
  6. TOPAMAX [Concomitant]
     Active Substance: TOPIRAMATE
     Indication: MIGRAINE

REACTIONS (13)
  - Deep vein thrombosis [Unknown]
  - Incorrect drug administration duration [Unknown]
  - Migraine [Unknown]
  - Vaginal haemorrhage [Unknown]
  - Major depression [Unknown]
  - Vena cava filter insertion [Unknown]
  - Coagulopathy [Unknown]
  - Thrombosis [Unknown]
  - Vomiting [Unknown]
  - Anxiety [Unknown]
  - Deep vein thrombosis [Unknown]
  - Off label use [Unknown]
  - Urinary tract infection [Unknown]

NARRATIVE: CASE EVENT DATE: 200604
